FAERS Safety Report 9355588 (Version 1)
Quarter: 2013Q2

REPORT INFORMATION
  Report Type: Spontaneous
  Country: US (occurrence: US)
  Receive Date: 20130619
  Receipt Date: 20130619
  Transmission Date: 20140414
  Serious: Yes (Other)
  Sender: FDA-Public Use
  Company Number: US-PFIZER INC-2013180025

PATIENT
  Age: 14 Year
  Sex: Male
  Weight: 40.8 kg

DRUGS (7)
  1. GENOTROPIN [Suspect]
     Indication: GROWTH HORMONE DEFICIENCY
     Dosage: UNK
     Route: 058
     Dates: end: 20130104
  2. GENOTROPIN [Suspect]
     Dosage: UNK
     Route: 058
     Dates: start: 2013
  3. VYVANSE [Concomitant]
     Dosage: UNK, 1X/DAY
  4. INTUNIV [Concomitant]
     Dosage: UNK, 1X/DAY
  5. TRAZODONE [Concomitant]
     Dosage: UNK
  6. MELATONIN [Concomitant]
     Indication: SLEEP DISORDER
     Dosage: UNK
  7. LUVOX [Concomitant]
     Indication: OBSESSIVE-COMPULSIVE DISORDER
     Dosage: UNK

REACTIONS (2)
  - Hip fracture [Unknown]
  - Hypothyroidism [Unknown]
